FAERS Safety Report 6769467-8 (Version None)
Quarter: 2010Q2

REPORT INFORMATION
  Report Type: 
  Country: None (occurrence: None)
  Receive Date: 20100615
  Receipt Date: 20100609
  Transmission Date: 20101027
  Serious: Yes (Life-Threatening)
  Sender: FDA-Public Use
  Company Number: JP-BAYER-201012280BYL

PATIENT
  Age: 3 Year
  Sex: Male

DRUGS (3)
  1. ASPIRIN [Suspect]
     Indication: KAWASAKI'S DISEASE
     Route: 048
  2. FLURBIPROFEN [Suspect]
     Indication: KAWASAKI'S DISEASE
     Route: 048
  3. POLYGAM [Concomitant]
     Indication: KAWASAKI'S DISEASE
     Route: 042

REACTIONS (1)
  - TOXIC EPIDERMAL NECROLYSIS [None]
